FAERS Safety Report 9492182 (Version 3)
Quarter: 2013Q4

REPORT INFORMATION
  Report Type: Spontaneous
  Country: IE (occurrence: IE)
  Receive Date: 20130830
  Receipt Date: 20131003
  Transmission Date: 20140711
  Serious: Yes (Other)
  Sender: FDA-Public Use
  Company Number: IE-JNJFOC-20130816203

PATIENT
  Age: 44 Year
  Sex: Female

DRUGS (6)
  1. SIMPONI [Suspect]
     Indication: PSORIATIC ARTHROPATHY
     Route: 058
     Dates: start: 20120815, end: 201212
  2. DIFENE [Concomitant]
     Route: 065
  3. FOSAMAX [Concomitant]
     Route: 065
  4. GALFER [Concomitant]
     Route: 065
  5. LYRICA [Concomitant]
     Route: 065
  6. SALAZOPYRIN [Concomitant]
     Route: 065

REACTIONS (2)
  - Gastrointestinal inflammation [Unknown]
  - Muscle spasms [Unknown]
